FAERS Safety Report 8988270 (Version 1)
Quarter: 2012Q4

REPORT INFORMATION
  Report Type: Report from Study
  Country: IL (occurrence: IL)
  Receive Date: 20121227
  Receipt Date: 20121227
  Transmission Date: 20130627
  Serious: Yes (Hospitalization)
  Sender: FDA-Public Use
  Company Number: IL-ASTELLAS-2012EU011122

PATIENT
  Age: 47 Year
  Sex: Male
  Weight: 87.5 kg

DRUGS (10)
  1. TACROLIMUS SYSTEMIC [Suspect]
     Indication: RENAL TRANSPLANT
     Dosage: 5 mg, bid
     Route: 048
     Dates: start: 20090301
  2. MYCOPHENOLATE MOFETIL [Suspect]
     Indication: RENAL TRANSPLANT
     Dosage: 500 mg, bid
     Route: 048
     Dates: start: 20090301
  3. OMEPRAZOLE [Concomitant]
     Dosage: 40 mg, Unknown/D
     Route: 065
     Dates: start: 20090301, end: 20090326
  4. ASPIRIN [Concomitant]
     Dosage: 130 mg, Unknown/D
     Route: 065
     Dates: start: 20090301
  5. RESPRIM [Concomitant]
     Dosage: 480 mg, Unknown/D
     Route: 065
     Dates: start: 20090301
  6. VALCYTE [Concomitant]
     Dosage: 450 mg, Unknown/D
     Route: 065
     Dates: start: 20090301, end: 20090311
  7. CADEX                              /00082201/ [Concomitant]
     Dosage: 21 mg, Unknown/D
     Route: 065
     Dates: start: 2006
  8. NORVASC [Concomitant]
     Dosage: 10 mg, Unknown/D
     Route: 065
     Dates: start: 2006
  9. CALCITE                            /07357001/ [Concomitant]
     Dosage: 400 mg, Unknown/D
     Route: 065
     Dates: start: 20090307, end: 20090311
  10. CALCITE                            /07357001/ [Concomitant]
     Dosage: 700 mg, Unknown/D
     Route: 065
     Dates: start: 20090317

REACTIONS (1)
  - Intestinal obstruction [Recovered/Resolved]
